FAERS Safety Report 7426595-1 (Version None)
Quarter: 2011Q1

REPORT INFORMATION
  Report Type: 
  Country: None (occurrence: None)
  Receive Date: 20110302
  Receipt Date: 20101223
  Transmission Date: 20110831
  Serious: No
  Sender: FDA-Public Use
  Company Number: 024605

PATIENT
  Sex: Male
  Weight: 70.3 kg

DRUGS (4)
  1. ATENOLOL [Concomitant]
  2. LISINOPRIL [Concomitant]
  3. CIMZIA [Suspect]
     Indication: CROHN'S DISEASE
     Dosage: (400 MG 1X/4 WEEKS SUBCUTANEOUS)
     Route: 058
     Dates: start: 20100401
  4. SYNTHROID [Concomitant]

REACTIONS (1)
  - NASOPHARYNGITIS [None]
